FAERS Safety Report 4594522-0 (Version None)
Quarter: 2005Q1

REPORT INFORMATION
  Report Type: 
  Country: None (occurrence: None)
  Receive Date: 20050301
  Receipt Date: 20040420
  Transmission Date: 20050727
  Serious: No
  Sender: FDA-Public Use
  Company Number: US-GLAXOSMITHKLINE-A0507701A

PATIENT
  Age: 49 Year
  Sex: Female

DRUGS (4)
  1. VALTREX [Suspect]
     Dosage: 1G PER DAY
     Route: 048
     Dates: start: 20040101
  2. LEXAPRO [Concomitant]
  3. KEPPRA [Concomitant]
  4. XANAX [Concomitant]

REACTIONS (3)
  - BURNING SENSATION [None]
  - HERPES VIRUS INFECTION [None]
  - PAIN [None]
